FAERS Safety Report 4876420-8 (Version None)
Quarter: 2005Q4

REPORT INFORMATION
  Report Type: 
  Country: None (occurrence: None)
  Receive Date: 20051206
  Receipt Date: 20051006
  Transmission Date: 20060501
  Serious: No
  Sender: FDA-Public Use
  Company Number: USA0510110205

PATIENT
  Age: 62 Year
  Sex: Female
  Weight: 109 kg

DRUGS (4)
  1. CYMBALTA [Suspect]
     Indication: DEPRESSION
     Dosage: 30 MG DAY
     Dates: start: 20050914
  2. PAXIL [Concomitant]
  3. WELLBUTRIN [Concomitant]
  4. XANAX [Concomitant]

REACTIONS (4)
  - ABDOMINAL PAIN [None]
  - DRUG INTERACTION [None]
  - NAUSEA [None]
  - VOMITING [None]
